FAERS Safety Report 10085268 (Version 3)
Quarter: 2014Q2

REPORT INFORMATION
  Report Type: Spontaneous
  Country: DK (occurrence: DK)
  Receive Date: 20140417
  Receipt Date: 20140610
  Transmission Date: 20141212
  Serious: Yes (Death, Hospitalization)
  Sender: FDA-Public Use
  Company Number: DK-ABBVIE-14P-044-1227467-00

PATIENT
  Age: 24 Year
  Sex: Male

DRUGS (4)
  1. TESTOSTERONE UNDECANOATE [Suspect]
     Indication: PRODUCT USED FOR UNKNOWN INDICATION
     Route: 065
  2. STANOZOLOL [Suspect]
     Indication: PRODUCT USED FOR UNKNOWN INDICATION
  3. METHANE DROSTENOLONE [Suspect]
     Indication: PRODUCT USED FOR UNKNOWN INDICATION
  4. NANDROLONE DECANOATE [Suspect]
     Indication: PRODUCT USED FOR UNKNOWN INDICATION
     Dosage: FREQUENCY UNKNOWN
     Route: 065

REACTIONS (4)
  - Carotid artery occlusion [Fatal]
  - Intracranial venous sinus thrombosis [Fatal]
  - Drug abuse [Fatal]
  - Infarction [None]
